FAERS Safety Report 8888683 (Version 1)
Quarter: 2012Q4

REPORT INFORMATION
  Report Type: Report from Study
  Country: AU (occurrence: AU)
  Receive Date: 20121106
  Receipt Date: 20121106
  Transmission Date: 20130627
  Serious: Yes (Other)
  Sender: FDA-Public Use
  Company Number: AU-ROCHE-1065386

PATIENT
  Age: 49 Year
  Sex: Female

DRUGS (10)
  1. TOCILIZUMAB [Suspect]
     Indication: RHEUMATOID ARTHRITIS
     Route: 042
     Dates: start: 20110321
  2. SULFASALAZINE [Concomitant]
  3. METHOTREXATE [Concomitant]
     Indication: RHEUMATOID ARTHRITIS
     Route: 048
  4. PREDNISOLONE [Concomitant]
     Indication: RHEUMATOID ARTHRITIS
     Route: 048
  5. DIABEX [Concomitant]
  6. FOLIC ACID [Concomitant]
  7. COVERSYL [Concomitant]
  8. CRESTOR [Concomitant]
  9. INDOCID [Concomitant]
  10. ONGLYZA [Concomitant]
     Route: 048

REACTIONS (2)
  - Joint stiffness [Not Recovered/Not Resolved]
  - Rheumatoid arthritis [Recovering/Resolving]
